FAERS Safety Report 16302568 (Version 1)
Quarter: 2019Q2

REPORT INFORMATION
  Report Type: Report from Study
  Country: CN (occurrence: CN)
  Receive Date: 20190513
  Receipt Date: 20190513
  Transmission Date: 20190711
  Serious: Yes (Other)
  Sender: FDA-Public Use
  Company Number: CN-ROCHE-2313212

PATIENT

DRUGS (2)
  1. BEVACIZUMAB. [Suspect]
     Active Substance: BEVACIZUMAB
     Indication: RECTAL CANCER
     Dosage: BODY SURFACE AREA OF {1.25 M2, 1.25 ~1.50 M2, AND }1.50 M2, WITH 14 CONSECUTIVE DAYS OF MEDICATION A
     Route: 042
  2. TS-1 [Suspect]
     Active Substance: GIMERACIL\OTERACIL\TEGAFUR
     Indication: RECTAL CANCER
     Dosage: SPECIFIC DOSAGES OF 40, 50, 60, AND 75 MG PER TIME, TWICE A DAY, WITH 14 CONSECUTIVE DAYS OF MEDICAT
     Route: 065

REACTIONS (4)
  - Thrombocytopenia [Unknown]
  - Gastrointestinal disorder [Unknown]
  - Leukopenia [Unknown]
  - Transaminases increased [Unknown]
